FAERS Safety Report 20363932 (Version 1)
Quarter: 2022Q1

REPORT INFORMATION
  Report Type: Other
  Country: DE (occurrence: None)
  Receive Date: 20220121
  Receipt Date: 20220121
  Transmission Date: 20220423
  Serious: Yes (Other)
  Sender: FDA-Public Use
  Company Number: DE-ROCHE-2999848

PATIENT

DRUGS (6)
  1. BEVACIZUMAB [Suspect]
     Active Substance: BEVACIZUMAB
     Indication: Eye disorder
     Route: 050
  2. RANIBIZUMAB [Suspect]
     Active Substance: RANIBIZUMAB
     Indication: Eye disorder
     Route: 050
  3. AFLIBERCEPT [Suspect]
     Active Substance: AFLIBERCEPT
     Indication: Eye disorder
     Route: 050
  4. OCRIPLASMIN [Suspect]
     Active Substance: OCRIPLASMIN
     Indication: Eye disorder
     Route: 050
  5. DEXAMETHASONE [Suspect]
     Active Substance: DEXAMETHASONE
     Indication: Eye disorder
     Dosage: IMPLANT
     Route: 065
  6. FLUOCINOLONE ACETONIDE [Suspect]
     Active Substance: FLUOCINOLONE ACETONIDE
     Indication: Eye disorder
     Dosage: IMPLANT
     Route: 065

REACTIONS (3)
  - Rhegmatogenous retinal detachment [Unknown]
  - Off label use [Unknown]
  - Off label use [Unknown]
